FAERS Safety Report 14345736 (Version 1)
Quarter: 2017Q4

REPORT INFORMATION
  Report Type: Spontaneous
  Country: US (occurrence: US)
  Receive Date: 20171230
  Receipt Date: 20171230
  Transmission Date: 20180321
  Serious: Yes (Hospitalization)
  Sender: FDA-Public Use
  Company Number: None

PATIENT
  Age: 57 Year
  Sex: Female

DRUGS (10)
  1. EXJADE [Suspect]
     Active Substance: DEFERASIROX
     Indication: IRON METABOLISM DISORDER
     Route: 048
     Dates: start: 201612
  2. EXJADE [Suspect]
     Active Substance: DEFERASIROX
     Indication: IRON METABOLISM DISORDER
  3. FA [Concomitant]
  4. METHLYPHENIDATE HCL [Concomitant]
     Active Substance: METHYLPHENIDATE HYDROCHLORIDE
  5. MS CONT [Concomitant]
  6. PROLIA [Concomitant]
     Active Substance: DENOSUMAB
  7. WELLBUTR [Concomitant]
  8. NEOMYCIN. [Concomitant]
     Active Substance: NEOMYCIN
  9. DILAUDID [Concomitant]
     Active Substance: HYDROMORPHONE HYDROCHLORIDE
  10. RITALN [Concomitant]

REACTIONS (1)
  - Sickle cell anaemia with crisis [None]

NARRATIVE: CASE EVENT DATE: 20171228
